FAERS Safety Report 9551326 (Version 1)
Quarter: 2013Q3

REPORT INFORMATION
  Report Type: Spontaneous
  Country: US (occurrence: US)
  Receive Date: 20130925
  Receipt Date: 20130925
  Transmission Date: 20140515
  Serious: Yes (Death)
  Sender: FDA-Public Use
  Company Number: US-SUN PHARMACEUTICAL INDUSTRIES LTD-2013SUN04730

PATIENT
  Age: 57 Year
  Sex: Female

DRUGS (11)
  1. METFORMIN HCL 500MG TABLETS (METFORMIN HYDROCHLORIDE) TABLET, 500MG HYDROCHLORIDE [Suspect]
     Indication: DIABETES MELLITUS
     Route: 065
  2. MIRTAZAPINE [Concomitant]
  3. ATORVASTATIN [Concomitant]
  4. GLIPIZIDE [Concomitant]
  5. PIOGLITAZONE/GLIMIPERIDE [Concomitant]
  6. TRAZODONE [Concomitant]
  7. LOSARTAN [Concomitant]
  8. CLONAZEPAM [Concomitant]
  9. UBIDECARENONE [Concomitant]
  10. ASPIRIN [Concomitant]
  11. VITAMINS [Concomitant]

REACTIONS (3)
  - Completed suicide [Fatal]
  - Intentional overdose [Fatal]
  - Toxicity to various agents [Fatal]
